FAERS Safety Report 14411146 (Version 1)
Quarter: 2018Q1

REPORT INFORMATION
  Report Type: Spontaneous
  Country: US (occurrence: US)
  Receive Date: 20180119
  Receipt Date: 20180119
  Transmission Date: 20180509
  Serious: No
  Sender: FDA-Public Use
  Company Number: US-ELI_LILLY_AND_COMPANY-US201801008382

PATIENT
  Sex: Female

DRUGS (3)
  1. FORTEO [Suspect]
     Active Substance: TERIPARATIDE
     Dosage: UNK, UNKNOWN
     Route: 065
  2. FORTEO [Suspect]
     Active Substance: TERIPARATIDE
     Indication: PRODUCT USED FOR UNKNOWN INDICATION
     Dosage: UNK, UNKNOWN
     Route: 065
     Dates: start: 20170923
  3. CLARITINE [Concomitant]
     Active Substance: LORATADINE
     Indication: PRURITUS
     Dosage: UNK, DAILY

REACTIONS (4)
  - Infection [Unknown]
  - Pruritus [Not Recovered/Not Resolved]
  - Hordeolum [Not Recovered/Not Resolved]
  - Mass [Unknown]
